FAERS Safety Report 6382413-4 (Version None)
Quarter: 2009Q3

REPORT INFORMATION
  Report Type: 
  Country: None (occurrence: None)
  Receive Date: 20090930
  Receipt Date: 20090924
  Transmission Date: 20100115
  Serious: Yes (Life-Threatening, Other)
  Sender: FDA-Public Use
  Company Number: JP-ABBOTT-09P-087-0596254-00

PATIENT
  Sex: Female
  Weight: 42 kg

DRUGS (9)
  1. SEVOFRANE [Suspect]
     Indication: MAINTENANCE OF ANAESTHESIA
     Route: 055
     Dates: start: 20080909, end: 20080909
  2. FENTANYL CITRATE [Suspect]
     Indication: DRUG USE FOR UNKNOWN INDICATION
     Route: 042
     Dates: start: 20080909, end: 20080909
  3. NITROUS OXIDE [Suspect]
     Indication: DRUG USE FOR UNKNOWN INDICATION
     Dates: start: 20080909, end: 20080909
  4. THIOPENTAL SODIUM [Suspect]
     Indication: DRUG USE FOR UNKNOWN INDICATION
     Route: 042
     Dates: start: 20080909, end: 20080909
  5. DROPERIDOL [Suspect]
     Indication: DRUG USE FOR UNKNOWN INDICATION
     Route: 042
     Dates: start: 20080909, end: 20080909
  6. VECURONIUM BROMIDE (MUSCULAX) [Concomitant]
     Indication: INDUCTION OF ANAESTHESIA
     Route: 042
     Dates: start: 20080909, end: 20080909
  7. FLURBIPROFEN AXETIL (ROPION) [Concomitant]
     Indication: DRUG USE FOR UNKNOWN INDICATION
     Route: 042
     Dates: start: 20080909, end: 20080909
  8. ATROPINE SULFATE HYDRATE (ATROPINE SULFATE HYDRATE) [Concomitant]
     Indication: ANAESTHESIA REVERSAL
     Route: 042
     Dates: start: 20080909, end: 20080909
  9. NEOSTIGMINE (VAGOSTIGMIN) [Concomitant]
     Indication: DRUG USE FOR UNKNOWN INDICATION
     Route: 042
     Dates: start: 20080909, end: 20080909

REACTIONS (5)
  - HYPERCAPNIA [None]
  - LARYNGOSPASM [None]
  - OBSTRUCTIVE AIRWAYS DISORDER [None]
  - RESPIRATORY ARREST [None]
  - RESPIRATORY DEPRESSION [None]
